FAERS Safety Report 9350179 (Version 1)
Quarter: 2013Q2

REPORT INFORMATION
  Report Type: Spontaneous
  Country: US (occurrence: US)
  Receive Date: 20130617
  Receipt Date: 20130617
  Transmission Date: 20140414
  Serious: No
  Sender: FDA-Public Use
  Company Number: US-B.I. PHARMACEUTICALS,INC./RIDGEFIELD-2013-BI-16434BP

PATIENT
  Age: 94 Year
  Sex: Male
  Weight: 68 kg

DRUGS (8)
  1. TRADJENTA [Suspect]
     Indication: TYPE 2 DIABETES MELLITUS
     Dosage: 5 MG
     Route: 048
     Dates: start: 20130607
  2. METOLAZONE [Concomitant]
  3. FUROSEMIDE [Concomitant]
  4. PRAVASTATIN [Concomitant]
  5. LANOXIN [Concomitant]
  6. IMDUR [Concomitant]
  7. HUMALOG [Concomitant]
  8. HUMULIN [Concomitant]

REACTIONS (1)
  - Hypoglycaemia [Recovered/Resolved]
